FAERS Safety Report 4910579-9 (Version None)
Quarter: 2006Q1

REPORT INFORMATION
  Report Type: 
  Country: None (occurrence: None)
  Receive Date: 20060208
  Receipt Date: 20060208
  Transmission Date: 20060701
  Serious: Yes (Hospitalization)
  Sender: FDA-Public Use
  Company Number: None

PATIENT
  Age: 61 Year
  Sex: Male
  Weight: 64.6 kg

DRUGS (1)
  1. PHENYTOIN [Suspect]
     Indication: CONVULSION
     Dosage: 230 MG QHS PO
     Route: 048
     Dates: start: 20050823, end: 20050907

REACTIONS (6)
  - ABASIA [None]
  - CONFUSIONAL STATE [None]
  - DRUG TOXICITY [None]
  - INCONTINENCE [None]
  - LETHARGY [None]
  - TREMOR [None]
